FAERS Safety Report 20949779 (Version 1)
Quarter: 2022Q2

REPORT INFORMATION
  Report Type: Spontaneous
  Country: IT (occurrence: IT)
  Receive Date: 20220613
  Receipt Date: 20220613
  Transmission Date: 20220721
  Serious: Yes (Death, Other)
  Sender: FDA-Public Use
  Company Number: IT-AMGEN-ITASP2022098051

PATIENT

DRUGS (8)
  1. ROMIPLOSTIM [Suspect]
     Active Substance: ROMIPLOSTIM
     Indication: Immune thrombocytopenia
     Dosage: UNK
     Route: 065
  2. CYCLOSPORINE [Concomitant]
     Active Substance: CYCLOSPORINE
     Indication: Immune thrombocytopenia
     Dosage: 3-5 MG/KG/DAY IN TWO DIVIDED DOSES
     Route: 065
  3. CYCLOSPORINE [Concomitant]
     Active Substance: CYCLOSPORINE
     Dosage: MAINTENANCE DOSE OF 1. 5-3 MG/KG/DAY
     Route: 065
  4. HUMAN IMMUNOGLOBULIN G [Concomitant]
     Active Substance: HUMAN IMMUNOGLOBULIN G
     Dosage: UNK
  5. ELTROMBOPAG [Concomitant]
     Active Substance: ELTROMBOPAG
  6. DANAZOL [Concomitant]
     Active Substance: DANAZOL
  7. AZATHIOPRINE [Concomitant]
     Active Substance: AZATHIOPRINE
  8. MYCOPHENOLATE MOFETIL [Concomitant]
     Active Substance: MYCOPHENOLATE MOFETIL

REACTIONS (21)
  - Chronic hepatic failure [Fatal]
  - Pneumocystis jirovecii pneumonia [Fatal]
  - Marasmus [Fatal]
  - COVID-19 pneumonia [Fatal]
  - Immune thrombocytopenia [Unknown]
  - Therapy non-responder [Unknown]
  - Infection [Unknown]
  - Hypertrichosis [Unknown]
  - Epistaxis [Unknown]
  - Petechiae [Unknown]
  - Cystitis escherichia [Unknown]
  - Blood creatinine increased [Recovered/Resolved]
  - Platelet count abnormal [Recovered/Resolved]
  - Asthenia [Unknown]
  - Dyspnoea [Unknown]
  - Nausea [Unknown]
  - Diarrhoea [Unknown]
  - Vomiting [Unknown]
  - Myalgia [Unknown]
  - Abdominal pain [Unknown]
  - Bone marrow reticulin fibrosis [Unknown]
